FAERS Safety Report 16939349 (Version 2)
Quarter: 2020Q3

REPORT INFORMATION
  Report Type: Spontaneous
  Country: US (occurrence: US)
  Receive Date: 20191021
  Receipt Date: 20200717
  Transmission Date: 20201102
  Serious: Yes (Death, Other)
  Sender: FDA-Public Use
  Company Number: US-ACTELION-A-CH2019-196818

PATIENT
  Age: 55 Year
  Sex: Male

DRUGS (5)
  1. EPOPROSTENOL SODIUM. [Suspect]
     Active Substance: EPOPROSTENOL SODIUM
     Indication: PULMONARY HYPERTENSION
     Dosage: 2 NG/KG, PER MIN
     Route: 042
  2. OPSUMIT [Suspect]
     Active Substance: MACITENTAN
     Indication: PULMONARY HYPERTENSION
     Route: 048
  3. SILDENAFIL. [Concomitant]
     Active Substance: SILDENAFIL
     Indication: PULMONARY HYPERTENSION
  4. MILRINONE [Concomitant]
     Active Substance: MILRINONE
     Indication: PULMONARY HYPERTENSION
  5. EPOPROSTENOL SODIUM. [Suspect]
     Active Substance: EPOPROSTENOL SODIUM
     Dosage: 8 NG/KG, PER MIN
     Route: 042

REACTIONS (10)
  - Lymphadenopathy [Fatal]
  - Pulmonary oedema [Fatal]
  - Pleural effusion [Fatal]
  - Atrial septal defect [Unknown]
  - General physical health deterioration [Unknown]
  - Haemodynamic instability [Fatal]
  - Condition aggravated [Unknown]
  - Pulmonary veno-occlusive disease [Fatal]
  - Hypoxia [Unknown]
  - Interstitial lung disease [Unknown]
